FAERS Safety Report 4458467-9 (Version None)
Quarter: 2004Q3

REPORT INFORMATION
  Report Type: 
  Country: None (occurrence: None)
  Receive Date: 20040922
  Receipt Date: 20031030
  Transmission Date: 20050211
  Serious: Yes (Other)
  Sender: FDA-Public Use
  Company Number: US-SHR-03-001081

PATIENT
  Age: 50 Year
  Sex: Female
  Weight: 59 kg

DRUGS (16)
  1. BETASERON [Suspect]
     Indication: MULTIPLE SCLEROSIS
     Dosage: 8 MIU, EVERY 2D, SUBCUTANEOUS
     Route: 058
     Dates: start: 20020725, end: 20021201
  2. BETASERON [Suspect]
  3. COUMADIN [Concomitant]
  4. LASIX [Concomitant]
  5. ISORBID [Concomitant]
  6. NITROSTAT [Concomitant]
  7. DILTIAZAM HYDROCHLORIDE (DILTIAZEM HYDROCHLORIDE) [Concomitant]
  8. CAPTOPRIL [Concomitant]
  9. PROZAC [Concomitant]
  10. MICRONASE [Concomitant]
  11. SINGULAIR ^MERCK^ (MONTELUKAST SODIUM) [Concomitant]
  12. ALBUTEROL SULFATE (VIA HAND HELD NEBULIZER) [Concomitant]
  13. ATROVENT (VIA HAND HELD NEBULIZER) (IPRATROPIUM BROMIDE) [Concomitant]
  14. MULTIVITAMINS (PANTHENOL, RETINOL) [Concomitant]
  15. PLAVIX [Concomitant]
  16. UNSPECIFIED PAIN MEDICATION [Concomitant]

REACTIONS (8)
  - BLOOD GLUCOSE INCREASED [None]
  - CHEST PAIN [None]
  - HEMIPARESIS [None]
  - HYPERTENSION [None]
  - INTERNATIONAL NORMALISED RATIO INCREASED [None]
  - LYMPH GLAND INFECTION [None]
  - PROTHROMBIN TIME PROLONGED [None]
  - SYNCOPE [None]
